FAERS Safety Report 23580863 (Version 2)
Quarter: 2024Q2

REPORT INFORMATION
  Report Type: Spontaneous
  Country: US (occurrence: US)
  Receive Date: 20240229
  Receipt Date: 20240507
  Transmission Date: 20240716
  Serious: No
  Sender: FDA-Public Use
  Company Number: US-Calliditas-2024CAL00267

PATIENT
  Age: 26 Year
  Sex: Male

DRUGS (1)
  1. TARPEYO [Suspect]
     Active Substance: BUDESONIDE
     Indication: IgA nephropathy
     Dosage: 16 MG (4 MG CAPSULES) ONCE DAILY
     Route: 048
     Dates: start: 20240202, end: 202404

REACTIONS (8)
  - Muscle spasms [Unknown]
  - Muscular weakness [Unknown]
  - Feeling cold [Unknown]
  - Dizziness postural [Unknown]
  - Product dose omission issue [Not Recovered/Not Resolved]
  - Asthenia [Unknown]
  - Fatigue [Unknown]
  - Sleep attacks [Unknown]

NARRATIVE: CASE EVENT DATE: 20230401
